FAERS Safety Report 16017506 (Version 2)
Quarter: 2019Q2

REPORT INFORMATION
  Report Type: Spontaneous
  Country: US (occurrence: US)
  Receive Date: 20190228
  Receipt Date: 20190620
  Transmission Date: 20190711
  Serious: No
  Sender: FDA-Public Use
  Company Number: US-MYLANLABS-2019M1016105

PATIENT
  Sex: Male

DRUGS (1)
  1. CARISOPRODOL MYLAN [Suspect]
     Active Substance: CARISOPRODOL
     Indication: MUSCLE SPASMS
     Dosage: UNK

REACTIONS (1)
  - Therapeutic product effect incomplete [Unknown]
